FAERS Safety Report 15660283 (Version 1)
Quarter: 2018Q4

REPORT INFORMATION
  Report Type: Spontaneous
  Country: US (occurrence: US)
  Receive Date: 20181115
  Receipt Date: 20181115
  Transmission Date: 20190205
  Serious: Yes (Life-Threatening, Disabling, Other)
  Sender: FDA-Public Use
  Company Number: None

PATIENT
  Age: 38 Year
  Sex: Male
  Weight: 87.75 kg

DRUGS (13)
  1. MAGNESIUM [Concomitant]
     Active Substance: MAGNESIUM
  2. SELENIUM [Concomitant]
     Active Substance: SELENIUM
  3. DAILY MENS MULTIVITAMIN [Concomitant]
  4. OPTIMARK [Suspect]
     Active Substance: GADOVERSETAMIDE
     Indication: NUCLEAR MAGNETIC RESONANCE IMAGING
     Dosage: ?          QUANTITY:4 INJECTION(S);OTHER FREQUENCY:4 DIFFERENT MRI^S;?
     Route: 042
     Dates: start: 20151125, end: 20180412
  5. INFRARED SAUNA [Concomitant]
  6. FISH OIL [Concomitant]
     Active Substance: FISH OIL
  7. ROSUVASATIN [Concomitant]
  8. VITAMIN C [Concomitant]
     Active Substance: ASCORBIC ACID
  9. CYMABLTA [Concomitant]
  10. FLAXSEED [Concomitant]
     Active Substance: FLAX SEED
  11. VITAMIN B12 [Concomitant]
     Active Substance: CYANOCOBALAMIN
  12. DOTAREM [Suspect]
     Active Substance: GADOTERATE MEGLUMINE
  13. GABAPENTIN. [Concomitant]
     Active Substance: GABAPENTIN

REACTIONS (11)
  - Cognitive disorder [None]
  - Bone pain [None]
  - Feeling abnormal [None]
  - Visual impairment [None]
  - Muscle spasms [None]
  - Renal pain [None]
  - Pain [None]
  - Abdominal pain lower [None]
  - Joint contracture [None]
  - Skin tightness [None]
  - Muscle twitching [None]

NARRATIVE: CASE EVENT DATE: 20160401
